FAERS Safety Report 15416871 (Version 1)
Quarter: 2018Q3

REPORT INFORMATION
  Report Type: Spontaneous
  Country: JP (occurrence: JP)
  Receive Date: 20180924
  Receipt Date: 20180924
  Transmission Date: 20181010
  Serious: Yes (Hospitalization, Other)
  Sender: FDA-Public Use
  Company Number: JP-009507513-1807JPN003024J

PATIENT
  Age: 58 Year
  Sex: Male

DRUGS (3)
  1. KEYTRUDA [Suspect]
     Active Substance: PEMBROLIZUMAB
     Indication: NON-SMALL CELL LUNG CANCER
     Dosage: 200 MG, UNK
     Route: 041
     Dates: start: 20180712, end: 20180712
  2. KEYTRUDA [Suspect]
     Active Substance: PEMBROLIZUMAB
     Dosage: 200 MG, UNK
     Route: 041
     Dates: start: 20180821, end: 20180821
  3. SULFAMETHOXAZOLE (+) TRIMETHOPRIM [Suspect]
     Active Substance: SULFAMETHOXAZOLE\TRIMETHOPRIM
     Dosage: UNK
     Route: 065

REACTIONS (3)
  - Interstitial lung disease [Recovered/Resolved]
  - Febrile neutropenia [Unknown]
  - Agranulocytosis [Unknown]

NARRATIVE: CASE EVENT DATE: 201807
